FAERS Safety Report 8895347 (Version 1)
Quarter: 2012Q4

REPORT INFORMATION
  Report Type: 
  Country: US (occurrence: US)
  Receive Date: 20121107
  Receipt Date: 20121107
  Transmission Date: 20130627
  Serious: Yes (Hospitalization, Other)
  Sender: FDA-Public Use
  Company Number: US-BAXTER-2012BAX022237

PATIENT
  Age: 39 Year
  Sex: Female

DRUGS (1)
  1. GAMMAGARD LIQUID [Suspect]
     Indication: DRUG USE FOR UNKNOWN INDICATION
     Route: 042

REACTIONS (5)
  - Rash [Unknown]
  - Headache [Unknown]
  - Musculoskeletal stiffness [Unknown]
  - Haemolytic anaemia [Unknown]
  - Dyspnoea [Unknown]
